FAERS Safety Report 8159795-6 (Version None)
Quarter: 2012Q1

REPORT INFORMATION
  Report Type: 
  Country: None (occurrence: None)
  Receive Date: 20120223
  Receipt Date: 20120217
  Transmission Date: 20120608
  Serious: Yes (Death, Hospitalization)
  Sender: FDA-Public Use
  Company Number: US-ACTELION-A-NJ2012-60610

PATIENT

DRUGS (5)
  1. FUROSEMIDE [Concomitant]
  2. SPIRONOLACTONE [Concomitant]
  3. EPOPROSTENOL SODIUM [Suspect]
     Indication: PULMONARY ARTERIAL HYPERTENSION
     Dosage: 48 NG/KG, PER MIN
     Route: 041
     Dates: start: 20110520, end: 20120202
  4. COUMADIN [Concomitant]
  5. DIGOXIN [Concomitant]

REACTIONS (3)
  - UNRESPONSIVE TO STIMULI [None]
  - ROAD TRAFFIC ACCIDENT [None]
  - INJURY [None]
